FAERS Safety Report 24944170 (Version 2)
Quarter: 2025Q1

REPORT INFORMATION
  Report Type: Spontaneous
  Country: JP (occurrence: JP)
  Receive Date: 20250207
  Receipt Date: 20250221
  Transmission Date: 20250408
  Serious: Yes (Hospitalization)
  Sender: ROCHE
  Company Number: JP-CHUGAI-2025003238

PATIENT
  Age: 82 Year
  Sex: Male

DRUGS (5)
  1. TECENTRIQ [Suspect]
     Active Substance: ATEZOLIZUMAB
     Indication: Non-small cell lung cancer
     Dosage: 1200 MILLIGRAM, ONCE/3WEEKS
     Route: 040
     Dates: start: 202407, end: 202412
  2. CARBOPLATIN [Concomitant]
     Active Substance: CARBOPLATIN
     Indication: Non-small cell lung cancer
     Route: 040
  3. CARBOPLATIN [Concomitant]
     Active Substance: CARBOPLATIN
     Route: 040
  4. ABRAXANE [Concomitant]
     Active Substance: PACLITAXEL
     Indication: Non-small cell lung cancer
     Route: 040
  5. ABRAXANE [Concomitant]
     Active Substance: PACLITAXEL
     Route: 040

REACTIONS (1)
  - Ureteric obstruction [Recovered/Resolved]

NARRATIVE: CASE EVENT DATE: 20241216
